FAERS Safety Report 8934384 (Version 2)
Quarter: 2013Q1

REPORT INFORMATION
  Report Type: Spontaneous
  Country: GB (occurrence: GB)
  Receive Date: 20121129
  Receipt Date: 20130219
  Transmission Date: 20140127
  Serious: Yes (Other)
  Sender: FDA-Public Use
  Company Number: GB-BAYER-2012-124143

PATIENT
  Age: 35 Year
  Sex: Female
  Weight: 47 kg

DRUGS (2)
  1. CANESTEN COMBI 500MG PESSARY + 2% CREAM [Suspect]
     Dosage: UNK
     Dates: start: 20121124
  2. NAPROXEN [Concomitant]
     Dosage: 250X3

REACTIONS (1)
  - Vaginal haemorrhage [Recovered/Resolved]
